FAERS Safety Report 24662582 (Version 1)
Quarter: 2024Q4

REPORT INFORMATION
  Report Type: Report from Study
  Country: CO (occurrence: CO)
  Receive Date: 20241126
  Receipt Date: 20241126
  Transmission Date: 20250114
  Serious: Yes (Other)
  Sender: ABBVIE
  Company Number: CO-JNJFOC-20241153750

PATIENT

DRUGS (1)
  1. IMBRUVICA [Suspect]
     Active Substance: IBRUTINIB
     Indication: Chronic lymphocytic leukaemia
     Route: 048

REACTIONS (7)
  - Cardiotoxicity [Unknown]
  - Nervous system disorder [Unknown]
  - Myelosuppression [Unknown]
  - Tumour lysis syndrome [Unknown]
  - Lymphocytosis [Unknown]
  - Haemorrhage [Unknown]
  - Cardiac disorder [Unknown]
